FAERS Safety Report 14003018 (Version 1)
Quarter: 2017Q3

REPORT INFORMATION
  Report Type: Spontaneous
  Country: GU (occurrence: GU)
  Receive Date: 20170922
  Receipt Date: 20170922
  Transmission Date: 20171128
  Serious: No
  Sender: FDA-Public Use
  Company Number: GU-ASTELLAS-2013US012295

PATIENT
  Sex: Male
  Weight: 54 kg

DRUGS (1)
  1. XTANDI [Suspect]
     Active Substance: ENZALUTAMIDE
     Indication: PROSTATE CANCER
     Route: 048
     Dates: start: 201302, end: 201311

REACTIONS (3)
  - Asthenia [Unknown]
  - Weight decreased [Unknown]
  - Malaise [Unknown]
